FAERS Safety Report 24576243 (Version 1)
Quarter: 2024Q4

REPORT INFORMATION
  Report Type: Spontaneous
  Country: US (occurrence: None)
  Receive Date: 20241103
  Receipt Date: 20241103
  Transmission Date: 20250114
  Serious: Yes (Disabling)
  Sender: Public
  Company Number: None

PATIENT
  Age: 27 Year
  Sex: Female
  Weight: 90 kg

DRUGS (3)
  1. CIPROFLOXACIN [Suspect]
     Active Substance: CIPROFLOXACIN
     Indication: Urinary tract infection
     Dates: start: 20241016, end: 20241016
  2. PANTOPRAZOLE [Concomitant]
     Active Substance: PANTOPRAZOLE
  3. LORATADINE [Concomitant]
     Active Substance: LORATADINE

REACTIONS (10)
  - Tendon pain [None]
  - Brain fog [None]
  - Pain [None]
  - Arthralgia [None]
  - Gait inability [None]
  - Neuropathy peripheral [None]
  - Muscle spasms [None]
  - Muscular weakness [None]
  - Depression [None]
  - Anxiety [None]

NARRATIVE: CASE EVENT DATE: 20241016
